FAERS Safety Report 10022720 (Version 1)
Quarter: 2014Q1

REPORT INFORMATION
  Report Type: Spontaneous
  Country: US (occurrence: US)
  Receive Date: 20140319
  Receipt Date: 20140319
  Transmission Date: 20141002
  Serious: Yes (Other)
  Sender: FDA-Public Use
  Company Number: US-PFIZER INC-2014074988

PATIENT
  Age: 70 Year
  Sex: Female
  Weight: 58.05 kg

DRUGS (5)
  1. ATORVASTATIN CALCIUM [Suspect]
     Indication: BLOOD CHOLESTEROL INCREASED
     Dosage: 10 MG, DAILY
     Dates: start: 201401
  2. ATORVASTATIN CALCIUM [Suspect]
     Dosage: 40 MG, DAILY
     Dates: start: 2014
  3. PRILOSEC [Concomitant]
     Dosage: 20 MG, DAILY
  4. ALPRAZOLAM [Concomitant]
     Dosage: 0.5 MG, DAILY
  5. VITAMIN D [Concomitant]
     Dosage: 50000 IU, MONTHLY

REACTIONS (4)
  - Aura [Not Recovered/Not Resolved]
  - Visual acuity reduced [Not Recovered/Not Resolved]
  - Amnesia [Not Recovered/Not Resolved]
  - Headache [Not Recovered/Not Resolved]
